FAERS Safety Report 22368473 (Version 2)
Quarter: 2023Q2

REPORT INFORMATION
  Report Type: Spontaneous
  Country: GB (occurrence: GB)
  Receive Date: 20230525
  Receipt Date: 20230606
  Transmission Date: 20230721
  Serious: Yes (Hospitalization, Other)
  Sender: FDA-Public Use
  Company Number: GB-MHRA-MED-202305151524326690-HQSNB

PATIENT

DRUGS (4)
  1. IBUPROFEN [Suspect]
     Active Substance: IBUPROFEN
     Indication: Neuropathy peripheral
     Dosage: 400MG THREE TIMES A DAY; ;
     Route: 065
     Dates: start: 20230423, end: 20230513
  2. FOLIC ACID [Concomitant]
     Active Substance: FOLIC ACID
     Indication: Adverse drug reaction
     Dates: start: 20230403
  3. GABAPENTIN [Concomitant]
     Active Substance: GABAPENTIN
     Indication: Neuropathy peripheral
  4. HYDROXOCOBALAMIN [Concomitant]
     Active Substance: HYDROXOCOBALAMIN
     Indication: Adverse drug reaction

REACTIONS (9)
  - Duodenal perforation [Recovering/Resolving]
  - Pneumoperitoneum [Unknown]
  - Appetite disorder [Unknown]
  - Weight decreased [Unknown]
  - Blood lactic acid increased [Unknown]
  - Malaise [Unknown]
  - Dysphagia [Unknown]
  - Gastrooesophageal reflux disease [Unknown]
  - Abdominal pain [Unknown]

NARRATIVE: CASE EVENT DATE: 20230513
